FAERS Safety Report 6828270-0 (Version None)
Quarter: 2010Q3

REPORT INFORMATION
  Report Type: 
  Country: None (occurrence: None)
  Receive Date: 20100709
  Receipt Date: 20070206
  Transmission Date: 20110219
  Serious: No
  Sender: FDA-Public Use
  Company Number: US-PFIZER INC-2007010621

PATIENT
  Sex: Female
  Weight: 74.84 kg

DRUGS (25)
  1. CHANTIX [Suspect]
     Indication: SMOKING CESSATION THERAPY
     Dates: start: 20070101, end: 20070201
  2. METFORMIN HCL [Concomitant]
  3. LEVOTHYROXINE SODIUM [Concomitant]
  4. TRICOR [Concomitant]
  5. PROTONIX [Concomitant]
  6. HYDROCHLOROTHIAZIDE [Concomitant]
  7. LIPITOR [Concomitant]
  8. METOPROLOL [Concomitant]
  9. WELLBUTRIN [Concomitant]
  10. LAMICTAL [Concomitant]
  11. ATIVAN [Concomitant]
  12. AMBIEN [Concomitant]
  13. PRINIVIL [Concomitant]
  14. VITAMINS [Concomitant]
  15. CALCIUM CARBONATE [Concomitant]
  16. ACETYLSALICYLIC ACID [Concomitant]
  17. FIBRE, DIETARY [Concomitant]
  18. DETROL [Concomitant]
  19. ZETIA [Concomitant]
  20. ISOSORBIDE [Concomitant]
  21. MONTELUKAST SODIUM [Concomitant]
  22. ADVAIR DISKUS 100/50 [Concomitant]
  23. TIOTROPIUM BROMIDE [Concomitant]
  24. ALBUTEROL [Concomitant]
  25. TRILEPTAL [Concomitant]

REACTIONS (6)
  - DIZZINESS [None]
  - GAIT DISTURBANCE [None]
  - HEADACHE [None]
  - MUSCULAR WEAKNESS [None]
  - NAUSEA [None]
  - VOMITING [None]
